FAERS Safety Report 9230836 (Version 1)
Quarter: 2013Q2

REPORT INFORMATION
  Report Type: Spontaneous
  Country: MX (occurrence: MX)
  Receive Date: 20130415
  Receipt Date: 20130415
  Transmission Date: 20140414
  Serious: Yes (Other)
  Sender: FDA-Public Use
  Company Number: PHHY2013MX034952

PATIENT
  Age: 53 Year
  Sex: Female

DRUGS (1)
  1. STALEVO [Suspect]
     Indication: PARKINSON^S DISEASE
     Dosage: 5 DF, DAILY (200 MG/150 MG/37.5 MG)
     Route: 048
     Dates: start: 201004

REACTIONS (1)
  - Neoplasm [Not Recovered/Not Resolved]
